FAERS Safety Report 18863667 (Version 2)
Quarter: 2021Q1

REPORT INFORMATION
  Report Type: Spontaneous
  Country: US (occurrence: US)
  Receive Date: 20210208
  Receipt Date: 20210325
  Transmission Date: 20210420
  Serious: No
  Sender: FDA-Public Use
  Company Number: US-ASTRAZENECA-2021A023788

PATIENT
  Age: 80 Year
  Sex: Male
  Weight: 93 kg

DRUGS (4)
  1. SPIRIVA [Concomitant]
     Active Substance: TIOTROPIUM BROMIDE MONOHYDRATE
     Indication: CHRONIC OBSTRUCTIVE PULMONARY DISEASE
     Dosage: DAILY
     Dates: start: 202012
  2. SYMBICORT [Suspect]
     Active Substance: BUDESONIDE\FORMOTEROL FUMARATE DIHYDRATE
     Indication: EMPHYSEMA
     Dosage: 160/4.5 MCG, TWO PUFFS TWICE A DAYS
     Route: 055
     Dates: start: 202012
  3. SPIRIVA [Concomitant]
     Active Substance: TIOTROPIUM BROMIDE MONOHYDRATE
     Indication: EMPHYSEMA
     Dosage: DAILY
     Dates: start: 202012
  4. SYMBICORT [Suspect]
     Active Substance: BUDESONIDE\FORMOTEROL FUMARATE DIHYDRATE
     Indication: CHRONIC OBSTRUCTIVE PULMONARY DISEASE
     Dosage: 160/4.5 MCG, TWO PUFFS TWICE A DAYS
     Route: 055
     Dates: start: 202012

REACTIONS (6)
  - Wrong technique in device usage process [Unknown]
  - Device failure [Unknown]
  - Cough [Unknown]
  - Dyspnoea [Unknown]
  - Intentional device misuse [Unknown]
  - Wheezing [Unknown]

NARRATIVE: CASE EVENT DATE: 202101
